FAERS Safety Report 5677726-5 (Version None)
Quarter: 2008Q1

REPORT INFORMATION
  Report Type: 
  Country: None (occurrence: None)
  Receive Date: 20080318
  Receipt Date: 20080305
  Transmission Date: 20080703
  Serious: Yes (Other)
  Sender: FDA-Public Use
  Company Number: 100#08#2008-01419

PATIENT
  Age: 9 Year
  Sex: Female
  Weight: 30 kg

DRUGS (3)
  1. DESMOPRESSIN ACETATE [Suspect]
     Indication: DIABETES INSIPIDUS
     Dosage: SEE IMAGE
     Route: 042
  2. HYDROCORTISONE HEMISUCCINATE (HYDROCORTISONE HEMISUCCINATE) [Concomitant]
  3. L-THYROXINE (LEVOTHYROXINE) [Concomitant]

REACTIONS (4)
  - BRAIN OEDEMA [None]
  - CONFUSIONAL STATE [None]
  - HYPONATRAEMIA [None]
  - WATER INTOXICATION [None]
